FAERS Safety Report 5635709-5 (Version None)
Quarter: 2008Q1

REPORT INFORMATION
  Report Type: 
  Country: None (occurrence: None)
  Receive Date: 20080220
  Receipt Date: 20080206
  Transmission Date: 20080703
  Serious: Yes (Other)
  Sender: FDA-Public Use
  Company Number: 2008-00440

PATIENT
  Age: 6 Year
  Sex: Male

DRUGS (2)
  1. VELCADE [Suspect]
     Indication: MULTIPLE MYELOMA
     Dosage: INTRAVENOUS
     Route: 042
  2. DEXAMETHASONE TAB [Concomitant]

REACTIONS (3)
  - ANOREXIA [None]
  - CACHEXIA [None]
  - PERSONALITY CHANGE [None]
